FAERS Safety Report 21312984 (Version 2)
Quarter: 2022Q3

REPORT INFORMATION
  Report Type: Spontaneous
  Country: AR (occurrence: AR)
  Receive Date: 20220909
  Receipt Date: 20220927
  Transmission Date: 20221027
  Serious: Yes (Other)
  Sender: FDA-Public Use
  Company Number: AR-NOVARTISPH-NVSC2022AR202526

PATIENT
  Sex: Male

DRUGS (4)
  1. EXFORGE [Suspect]
     Active Substance: AMLODIPINE BESYLATE\VALSARTAN
     Indication: Blood pressure abnormal
     Dosage: 1 DOSAGE FORM, QD (5-160 MG) (STARTED 15 YEARS AGO)
     Route: 065
     Dates: end: 202205
  2. EXFORGE [Suspect]
     Active Substance: AMLODIPINE BESYLATE\VALSARTAN
     Dosage: 1 DOSAGE FORM, QD (5-320 MG)
     Route: 065
  3. DIUREX [Concomitant]
     Indication: Product used for unknown indication
     Dosage: UNK QD (HALF OF 25 MG) DIURETIC TO HELP REGULARIZE THE PRESSURE, SINCE ?? MAY 2022
     Route: 065
  4. NOSTER [Concomitant]
     Indication: Product used for unknown indication
     Dosage: UNK, QD (OF 5-320  (UNITS NOT  PROVIDED)
     Route: 065
     Dates: start: 202206

REACTIONS (6)
  - Metastasis [Unknown]
  - Metastases to bone [Unknown]
  - Nephrolithiasis [Unknown]
  - Hepatic mass [Unknown]
  - Renal mass [Unknown]
  - Blood pressure abnormal [Unknown]
